FAERS Safety Report 24591168 (Version 1)
Quarter: 2024Q4

REPORT INFORMATION
  Report Type: Spontaneous
  Country: DE (occurrence: DE)
  Receive Date: 20241108
  Receipt Date: 20241108
  Transmission Date: 20250115
  Serious: Yes (Other)
  Sender: NOVARTIS
  Company Number: DE-BIOGEN-2024BI01288721

PATIENT
  Sex: Female

DRUGS (3)
  1. GILENYA [Suspect]
     Active Substance: FINGOLIMOD HYDROCHLORIDE
     Indication: Product used for unknown indication
     Dosage: UNK
     Route: 065
  2. AVONEX [Suspect]
     Active Substance: INTERFERON BETA-1A
     Indication: Multiple sclerosis
     Dosage: UNK
     Route: 065
     Dates: start: 20050801
  3. AVONEX [Suspect]
     Active Substance: INTERFERON BETA-1A
     Dosage: 30 UG, QW
     Route: 030
     Dates: start: 20140320

REACTIONS (2)
  - Skin cancer [Recovered/Resolved]
  - Blood test abnormal [Recovered/Resolved]
